FAERS Safety Report 13050454 (Version 3)
Quarter: 2017Q1

REPORT INFORMATION
  Report Type: Spontaneous
  Country: US (occurrence: US)
  Receive Date: 20161221
  Receipt Date: 20170105
  Transmission Date: 20170428
  Serious: Yes (Other)
  Sender: FDA-Public Use
  Company Number: US-ASTELLAS-2016US049431

PATIENT
  Sex: Male

DRUGS (1)
  1. XTANDI [Suspect]
     Active Substance: ENZALUTAMIDE
     Indication: PROSTATE CANCER
     Route: 048
     Dates: start: 20161209

REACTIONS (8)
  - Osteoarthritis [Unknown]
  - Dizziness [Unknown]
  - Nasopharyngitis [Unknown]
  - Nausea [Unknown]
  - Vertigo [Unknown]
  - Fatigue [Unknown]
  - Vomiting [Unknown]
  - Spinal osteoarthritis [Unknown]
